FAERS Safety Report 5242006-9 (Version None)
Quarter: 2007Q1

REPORT INFORMATION
  Report Type: 
  Country: None (occurrence: None)
  Receive Date: 20070220
  Receipt Date: 20070213
  Transmission Date: 20070707
  Serious: Yes (Other)
  Sender: FDA-Public Use
  Company Number: FR-PFIZER INC-2007001375

PATIENT
  Age: 28 Year
  Sex: Female
  Weight: 58 kg

DRUGS (5)
  1. REACTINE [Suspect]
     Indication: HYPERSENSITIVITY
     Dates: start: 20061212, end: 20061201
  2. FERROUS SULFATE TAB [Concomitant]
  3. MAGNESIUM CITRATE [Concomitant]
  4. PYRIDOXINE HCL [Concomitant]
  5. DRUG, UNSPECIFIED [Concomitant]

REACTIONS (8)
  - DIZZINESS [None]
  - FATIGUE [None]
  - HEADACHE [None]
  - NAUSEA [None]
  - SOMNOLENCE [None]
  - SUICIDAL IDEATION [None]
  - VERTIGO [None]
  - VOMITING [None]
